FAERS Safety Report 8513411 (Version 3)
Quarter: 2013Q3

REPORT INFORMATION
  Report Type: Spontaneous
  Country: US (occurrence: US)
  Receive Date: 20120416
  Receipt Date: 20130717
  Transmission Date: 20140515
  Serious: Yes (Other)
  Sender: FDA-Public Use
  Company Number: US-PFIZER INC-2012092486

PATIENT
  Age: 68 Year
  Sex: Female
  Weight: 58.96 kg

DRUGS (2)
  1. LIPITOR [Suspect]
     Indication: BLOOD CHOLESTEROL INCREASED
     Dosage: 40 MG, DAILY
     Dates: start: 2002
  2. LIPITOR [Suspect]
     Indication: COLITIS ISCHAEMIC

REACTIONS (3)
  - Ovarian cancer stage I [Recovered/Resolved]
  - Body height decreased [Unknown]
  - Vomiting [Unknown]
